FAERS Safety Report 18363936 (Version 3)
Quarter: 2020Q4

REPORT INFORMATION
  Report Type: Report from Study
  Country: CA (occurrence: CA)
  Receive Date: 20201009
  Receipt Date: 20201105
  Transmission Date: 20210114
  Serious: Yes (Other)
  Sender: FDA-Public Use
  Company Number: CA-JNJFOC-20201000450

PATIENT
  Age: 48 Year
  Sex: Female
  Weight: 59 kg

DRUGS (2)
  1. STELARA [Suspect]
     Active Substance: USTEKINUMAB
     Indication: CROHN^S DISEASE
     Dosage: THE PATIENT RECEIVED LAST DOSE ON 30-SEP-2020
     Route: 042
     Dates: start: 20190314
  2. STELARA [Suspect]
     Active Substance: USTEKINUMAB
     Dosage: THE PATIENT RECEIVED 15TH 90 MG DOSE ON 29/OCT/2020.
     Route: 058
     Dates: start: 20200930

REACTIONS (6)
  - Grief reaction [Unknown]
  - Insomnia [Not Recovered/Not Resolved]
  - Crohn^s disease [Not Recovered/Not Resolved]
  - Eating disorder [Not Recovered/Not Resolved]
  - Emotional disorder [Not Recovered/Not Resolved]
  - Stress [Unknown]

NARRATIVE: CASE EVENT DATE: 202008
